FAERS Safety Report 21102794 (Version 5)
Quarter: 2024Q4

REPORT INFORMATION
  Report Type: Other
  Country: PA (occurrence: PA)
  Receive Date: 20220720
  Receipt Date: 20241126
  Transmission Date: 20250115
  Serious: Yes (Other)
  Sender: TOLMAR
  Company Number: PA-TOLMAR, INC.-22PA035364

PATIENT
  Sex: Male

DRUGS (3)
  1. ELIGARD [Suspect]
     Active Substance: LEUPROLIDE ACETATE
     Indication: Prostate cancer
     Dosage: 45 MILLIGRAM, Q 6 MONTH
     Route: 058
     Dates: start: 20220407
  2. ELIGARD [Suspect]
     Active Substance: LEUPROLIDE ACETATE
     Dosage: 45 MILLIGRAM, Q 6 MONTH
     Route: 058
     Dates: start: 202304
  3. CASODEX [Concomitant]
     Active Substance: BICALUTAMIDE
     Indication: Product used for unknown indication
     Dosage: 50 MILLIGRAM, QD

REACTIONS (11)
  - Sexual dysfunction [Unknown]
  - Feeling hot [Not Recovered/Not Resolved]
  - Andropause [Unknown]
  - Feeling of despair [Unknown]
  - Therapy cessation [Unknown]
  - Hyperhidrosis [Not Recovered/Not Resolved]
  - Prostatic specific antigen increased [Recovered/Resolved]
  - Malaise [Not Recovered/Not Resolved]
  - Libido decreased [Unknown]
  - Hot flush [Unknown]
  - Fatigue [Unknown]
